FAERS Safety Report 20084632 (Version 2)
Quarter: 2022Q1

REPORT INFORMATION
  Report Type: Report from Study
  Country: CL (occurrence: CL)
  Receive Date: 20211118
  Receipt Date: 20220317
  Transmission Date: 20220424
  Serious: Yes (Hospitalization)
  Sender: FDA-Public Use
  Company Number: CL-JNJFOC-20210942248

PATIENT
  Age: 7 Decade
  Sex: Male

DRUGS (2)
  1. SIMPONI [Suspect]
     Active Substance: GOLIMUMAB
     Indication: Psoriatic arthropathy
     Route: 058
     Dates: start: 20210611, end: 20210813
  2. SIMPONI [Suspect]
     Active Substance: GOLIMUMAB

REACTIONS (8)
  - Viral infection [Unknown]
  - Heart valve replacement [Unknown]
  - Visual impairment [Unknown]
  - Hyperhidrosis [Unknown]
  - Feeling cold [Unknown]
  - Weight decreased [Unknown]
  - Balance disorder [Unknown]
  - Hypotension [Unknown]

NARRATIVE: CASE EVENT DATE: 20210101
